FAERS Safety Report 5516879-6 (Version None)
Quarter: 2007Q4

REPORT INFORMATION
  Report Type: 
  Country: None (occurrence: None)
  Receive Date: 20071114
  Receipt Date: 20071114
  Transmission Date: 20080405
  Serious: Yes (Hospitalization)
  Sender: FDA-Public Use
  Company Number: A0694452A

PATIENT
  Age: 41 Year
  Sex: Female
  Weight: 47.7 kg

DRUGS (1)
  1. ALLI [Suspect]
     Dates: start: 20070701

REACTIONS (5)
  - ABDOMINAL DISTENSION [None]
  - CHOLELITHIASIS [None]
  - GALLBLADDER DISORDER [None]
  - PAIN [None]
  - SCAR [None]
